FAERS Safety Report 8094306-5 (Version None)
Quarter: 2012Q1

REPORT INFORMATION
  Report Type: 
  Country: None (occurrence: None)
  Receive Date: 20120130
  Receipt Date: 20120118
  Transmission Date: 20120608
  Serious: No
  Sender: FDA-Public Use
  Company Number: US-PFIZER INC-2012014749

PATIENT
  Sex: Female

DRUGS (3)
  1. CLARITIN-D [Suspect]
     Indication: HYPERSENSITIVITY
     Dosage: UNK
  2. CELEBREX [Suspect]
     Indication: NECK PAIN
  3. CELEBREX [Suspect]
     Indication: ARTHRITIS
     Dosage: 200 MG, UNK

REACTIONS (2)
  - HYPERTENSION [None]
  - THERAPEUTIC RESPONSE DECREASED [None]
